FAERS Safety Report 15536662 (Version 1)
Quarter: 2018Q4

REPORT INFORMATION
  Report Type: Report from Study
  Country: CA (occurrence: CA)
  Receive Date: 20181022
  Receipt Date: 20181022
  Transmission Date: 20190205
  Serious: Yes (Hospitalization)
  Sender: FDA-Public Use
  Company Number: CA-EMD SERONO-E2B_90054697

PATIENT
  Age: 59 Year
  Sex: Male
  Weight: 51 kg

DRUGS (11)
  1. BENZYDAMINE [Concomitant]
     Active Substance: BENZYDAMINE
     Indication: DRY MOUTH
     Dosage: 0.15 %, TWICE A MONTH
     Route: 048
     Dates: start: 2016
  2. HYDROCORTISONE. [Concomitant]
     Active Substance: HYDROCORTISONE
     Indication: ECZEMA
     Dosage: 0.5 %, AS NEEDED
     Route: 061
     Dates: start: 2015
  3. RABEPRAZOLE [Concomitant]
     Active Substance: RABEPRAZOLE
     Indication: GASTROOESOPHAGEAL REFLUX PROPHYLAXIS
     Dosage: 20 MG, DAILY AS NEEDED
     Route: 048
     Dates: start: 20180717
  4. CARBAMAZEPINE. [Concomitant]
     Active Substance: CARBAMAZEPINE
     Indication: SEIZURE PROPHYLAXIS
     Dosage: 200 MG, 2X/DAY
     Route: 048
     Dates: start: 2009
  5. AVELUMAB [Suspect]
     Active Substance: AVELUMAB
     Indication: SQUAMOUS CELL CARCINOMA OF HEAD AND NECK
     Dosage: 10 MG/KG, CYCLIC (DAYS 1 + 15)
     Route: 042
     Dates: start: 20171011, end: 20180705
  6. PF-04518600 [Suspect]
     Active Substance: INVESTIGATIONAL PRODUCT
     Indication: SQUAMOUS CELL CARCINOMA OF HEAD AND NECK
     Dosage: 0.3 MG/KG, CYCLIC (DAYS 1 + 15)
     Route: 042
     Dates: start: 20171011, end: 20180705
  7. IMODIUM [Concomitant]
     Active Substance: LOPERAMIDE HYDROCHLORIDE
     Indication: DIARRHOEA
     Dosage: 5 MG, EVERY 2 HOURS AS NEEDED
     Route: 048
     Dates: start: 20180713, end: 20180718
  8. NAPHCON [Concomitant]
     Active Substance: NAPHAZOLINE HYDROCHLORIDE
     Indication: SEASONAL ALLERGY
     Dosage: UNK UNK, AS NEEDED
     Dates: start: 2012
  9. IBUPROFEN. [Concomitant]
     Active Substance: IBUPROFEN
     Indication: SCIATICA
     Dosage: 400 MG, 2X/DAY AS NEEDED
     Route: 048
     Dates: start: 2000
  10. ONDANSETRON [Concomitant]
     Active Substance: ONDANSETRON
     Indication: NAUSEA
     Dosage: 8 MG, EVERY 8 HOURS AS NEEDED
     Route: 048
     Dates: start: 20180712
  11. ONDANSETRON [Concomitant]
     Active Substance: ONDANSETRON
     Indication: VOMITING

REACTIONS (1)
  - Pancreatitis [Recovered/Resolved]

NARRATIVE: CASE EVENT DATE: 20180717
